FAERS Safety Report 5113005-2 (Version None)
Quarter: 2006Q3

REPORT INFORMATION
  Report Type: 
  Country: None (occurrence: None)
  Receive Date: 20060921
  Receipt Date: 20060921
  Transmission Date: 20061208
  Serious: Yes (Hospitalization)
  Sender: FDA-Public Use
  Company Number: None

PATIENT
  Sex: Male
  Weight: 70 kg

DRUGS (16)
  1. ZYVOX [Suspect]
     Indication: PHLEBITIS
     Dosage: 600 MG Q 12 HOURS PO
     Route: 048
     Dates: start: 20060822, end: 20060823
  2. MEPERIDINE HCL [Concomitant]
  3. TEMAZEPAM [Concomitant]
  4. LEVOFLOXACIN [Concomitant]
  5. PHENERGAN [Concomitant]
  6. LACTULOSE [Concomitant]
  7. PANTOPRAZOLE SODIUM [Concomitant]
  8. NEUPOGEN [Concomitant]
  9. PROPRANOLOL [Concomitant]
  10. TENOFOVIR [Concomitant]
  11. EMTRICITABINE [Concomitant]
  12. STAVUDINE [Concomitant]
  13. BACTRIM DS [Concomitant]
  14. FLUCONAZOLE [Concomitant]
  15. HYDROMORPHONE HCL [Concomitant]
  16. METRONIDAZOLE [Concomitant]

REACTIONS (6)
  - DELIRIUM [None]
  - ENCEPHALOPATHY [None]
  - FLUSHING [None]
  - PRESSURE OF SPEECH [None]
  - RESTLESSNESS [None]
  - TACHYCARDIA [None]
